FAERS Safety Report 5529984-5 (Version None)
Quarter: 2007Q4

REPORT INFORMATION
  Report Type: 
  Country: None (occurrence: None)
  Receive Date: 20071129
  Receipt Date: 20071114
  Transmission Date: 20080405
  Serious: No
  Sender: FDA-Public Use
  Company Number: US-ABBOTT-07P-163-0425070-00

PATIENT
  Sex: Male
  Weight: 105.4 kg

DRUGS (2)
  1. MERIDIA [Suspect]
     Indication: DECREASED APPETITE
     Dosage: LOT #/ EXP NOT ON PHARMACY BOTTLE PER PATIENT
     Route: 048
     Dates: start: 20071107
  2. CEPHALEXIN [Concomitant]
     Route: 048
     Dates: start: 20071031, end: 20071114

REACTIONS (1)
  - LIBIDO DECREASED [None]
